FAERS Safety Report 9460705 (Version 1)
Quarter: 2013Q3

REPORT INFORMATION
  Report Type: Spontaneous
  Country: SE (occurrence: None)
  Receive Date: 20130813
  Receipt Date: 20130813
  Transmission Date: 20140515
  Serious: Yes (Hospitalization, Other)
  Sender: FDA-Public Use
  Company Number: AUR-APL-2013-06618

PATIENT
  Age: 36 Year
  Sex: Male

DRUGS (3)
  1. MIRTAZAPINE (MIRTAZAPINE) [Suspect]
     Indication: PRODUCT USED FOR UNKNOWN INDICATION
     Route: 048
     Dates: start: 20130626, end: 20130626
  2. ATARAX (HYDROXYZINE) [Suspect]
     Route: 048
     Dates: start: 20130626, end: 20130626
  3. STILNOCT (ZOLPIDEM TARTRATE) [Suspect]
     Route: 048
     Dates: start: 20130626, end: 20130626

REACTIONS (3)
  - Suicide attempt [None]
  - Poisoning [None]
  - Somnolence [None]
